FAERS Safety Report 12694829 (Version 4)
Quarter: 2017Q2

REPORT INFORMATION
  Report Type: Report from Study
  Country: US (occurrence: US)
  Receive Date: 20160829
  Receipt Date: 20170508
  Transmission Date: 20170830
  Serious: Yes (Death, Hospitalization, Other)
  Sender: FDA-Public Use
  Company Number: US-JNJFOC-20160819526

PATIENT
  Age: 67 Year
  Sex: Male

DRUGS (4)
  1. IBRUTINIB [Suspect]
     Active Substance: IBRUTINIB
     Indication: MANTLE CELL LYMPHOMA
     Route: 048
     Dates: start: 20160730, end: 20160805
  2. IBRUTINIB [Suspect]
     Active Substance: IBRUTINIB
     Indication: MANTLE CELL LYMPHOMA
     Dosage: 560 MG, QD
     Route: 048
     Dates: start: 20160707, end: 20160721
  3. PALBOCICLIB [Suspect]
     Active Substance: PALBOCICLIB
     Indication: MANTLE CELL LYMPHOMA
     Dosage: ON DAYS 1-21 OF A 28 DAY CYCLE.
     Route: 048
     Dates: start: 20160707, end: 20160721
  4. PALBOCICLIB [Suspect]
     Active Substance: PALBOCICLIB
     Indication: MANTLE CELL LYMPHOMA
     Dosage: ON DAYS 1-21 OF A 28 DAY CYCLE.
     Route: 048
     Dates: start: 20160804, end: 20160804

REACTIONS (8)
  - Hypotension [Recovered/Resolved]
  - Abdominal pain [Recovered/Resolved]
  - Rash maculo-papular [Recovered/Resolved]
  - Anaemia [Recovered/Resolved]
  - Gastric haemorrhage [Recovered/Resolved]
  - Neoplasm [Fatal]
  - Acute respiratory distress syndrome [Recovered/Resolved]
  - Muscle haemorrhage [Not Recovered/Not Resolved]

NARRATIVE: CASE EVENT DATE: 20160721
